FAERS Safety Report 8580019-X (Version None)
Quarter: 2012Q2

REPORT INFORMATION
  Report Type: 
  Country: None (occurrence: None)
  Receive Date: 20120423
  Receipt Date: 20101013
  Transmission Date: 20120825
  Serious: Yes (Other)
  Sender: FDA-Public Use
  Company Number: PHHY2010US53260

PATIENT
  Age: 41 Year
  Sex: Male
  Weight: 81 kg

DRUGS (5)
  1. EXJADE [Suspect]
     Indication: HAEMANGIOMA
     Dosage: 1500 MG, QD, ORAL
     Route: 048
     Dates: start: 20120723
  2. EXJADE [Suspect]
     Indication: IRON METABOLISM DISORDER
     Dosage: 1500 MG, QD, ORAL
     Route: 048
     Dates: start: 20120723
  3. DOXIL [Concomitant]
  4. METAMUCIL (ISPHAGHULA, PLANTAGO OVATA) [Concomitant]
  5. IMODIUM [Concomitant]

REACTIONS (5)
  - VOMITING [None]
  - RENAL DISORDER [None]
  - DIARRHOEA [None]
  - NAUSEA [None]
  - ABDOMINAL DISCOMFORT [None]
